FAERS Safety Report 13099254 (Version 7)
Quarter: 2019Q1

REPORT INFORMATION
  Report Type: Report from Study
  Country: US (occurrence: US)
  Receive Date: 20170109
  Receipt Date: 20190123
  Transmission Date: 20190417
  Serious: Yes (Hospitalization, Other)
  Sender: FDA-Public Use
  Company Number: US-ACTELION-A-US2017-147932

PATIENT
  Age: 74 Year
  Sex: Female
  Weight: 104.31 kg

DRUGS (4)
  1. OPSUMIT [Suspect]
     Active Substance: MACITENTAN
     Indication: PULMONARY ARTERIAL HYPERTENSION
     Dosage: 10 MG, QD
     Route: 048
     Dates: start: 20160304
  2. OPSUMIT [Suspect]
     Active Substance: MACITENTAN
     Dosage: UNK
     Route: 048
  3. ORENITRAM [Suspect]
     Active Substance: TREPROSTINIL
     Indication: PRODUCT USED FOR UNKNOWN INDICATION
     Route: 065
  4. LISINOPRIL. [Concomitant]
     Active Substance: LISINOPRIL

REACTIONS (9)
  - Blood potassium increased [Recovered/Resolved]
  - Kidney infection [Unknown]
  - Dyspnoea [Unknown]
  - Muscle spasms [Unknown]
  - Somnambulism [Unknown]
  - Biliary colic [Unknown]
  - Headache [Unknown]
  - Dyspnoea exertional [Unknown]
  - Hallucination, visual [Unknown]
